FAERS Safety Report 5290574-3 (Version None)
Quarter: 2007Q1

REPORT INFORMATION
  Report Type: 
  Country: None (occurrence: None)
  Receive Date: 20070212
  Receipt Date: 20070212
  Transmission Date: 20070707
  Serious: No
  Sender: FDA-Public Use
  Company Number: None

PATIENT
  Age: 63 Year
  Sex: Female
  Weight: 74.3899 kg

DRUGS (3)
  1. ABRAXANE [Suspect]
     Indication: BREAST CANCER
     Dosage: 260MG.M2/Q 21 DAYS/IV
     Route: 042
     Dates: start: 20070202, end: 20070202
  2. XELODA [Suspect]
     Indication: BREAST CANCER
     Dosage: 1500MG/M2/BID14DAYS/ORA
     Route: 048
     Dates: start: 20070202, end: 20070209
  3. SYNTHROID [Concomitant]

REACTIONS (4)
  - ABDOMINAL PAIN [None]
  - NAUSEA [None]
  - URTICARIA [None]
  - VOMITING [None]
